FAERS Safety Report 8333367-2 (Version None)
Quarter: 2012Q1

REPORT INFORMATION
  Report Type: 
  Country: None (occurrence: None)
  Receive Date: 20120327
  Receipt Date: 20110413
  Transmission Date: 20120608
  Serious: Yes (Hospitalization, Other)
  Sender: FDA-Public Use
  Company Number: PHHY2011US31154

PATIENT
  Age: 72 Year
  Sex: Male

DRUGS (1)
  1. GLEEVEC [Suspect]
     Indication: CHRONIC MYELOID LEUKAEMIA
     Dosage: 300 MG, QD, ORAL
     Route: 048
     Dates: start: 20091001

REACTIONS (4)
  - PYREXIA [None]
  - DEHYDRATION [None]
  - VOMITING [None]
  - URINARY TRACT INFECTION [None]
